FAERS Safety Report 8791898 (Version 2)
Quarter: 2012Q4

REPORT INFORMATION
  Report Type: Report from Study
  Country: JP (occurrence: JP)
  Receive Date: 20120918
  Receipt Date: 20121017
  Transmission Date: 20130627
  Serious: Yes (Other)
  Sender: FDA-Public Use
  Company Number: PHHY2012JP079973

PATIENT
  Sex: Female
  Weight: 44 kg

DRUGS (14)
  1. EXELON [Suspect]
     Indication: DEMENTIA ALZHEIMER^S TYPE
     Dosage: 4.5 mg, daily
     Route: 062
     Dates: start: 20120127
  2. EXELON [Suspect]
     Dosage: 9 mg, daily
     Route: 062
     Dates: start: 20120224
  3. EXELON [Suspect]
     Dosage: 13.5 mg, daily
     Route: 062
     Dates: start: 20120322
  4. EXELON [Suspect]
     Dosage: 18 mg, daily
     Route: 062
     Dates: start: 20120427, end: 20120621
  5. LASIX [Concomitant]
     Indication: HYPERTENSION
     Dosage: 20 mg, UNK
     Route: 048
  6. ASPIRIN [Concomitant]
     Indication: CAROTID ARTERY STENOSIS
     Dosage: 100 mg, UNK
     Route: 048
  7. AMBROXOL HYDROCHLORIDE [Concomitant]
     Indication: BRONCHITIS CHRONIC
     Dosage: 45 mg, UNK
     Route: 048
  8. FENELMIN [Concomitant]
     Indication: IRON DEFICIENCY ANAEMIA
     Dosage: 50 mg, UNK
     Route: 048
  9. DOXAZOSIN MESILATE [Concomitant]
     Indication: HYPERTENSION
     Dosage: 2 mg, UNK
     Route: 048
  10. IPD [Concomitant]
     Indication: XERODERMA
     Dosage: 300 mg, UNK
     Route: 048
  11. KREMEZIN [Concomitant]
     Indication: RENAL IMPAIRMENT
     Dosage: 6 g, UNK
     Route: 048
     Dates: start: 20120706
  12. KALIMATE [Concomitant]
     Indication: HYPERKALAEMIA
     Dosage: 15 g, UNK
     Route: 048
     Dates: start: 20120706
  13. SENNOSIDE [Concomitant]
     Indication: CONSTIPATION
     Dosage: 24 mg, UNK
     Route: 048
  14. TULOBUTEROL [Concomitant]
     Indication: BRONCHITIS CHRONIC
     Dosage: 2 mg, UNK

REACTIONS (5)
  - Red blood cell count abnormal [Unknown]
  - Blood urea abnormal [Unknown]
  - Blood creatinine abnormal [Unknown]
  - Electrocardiogram T wave amplitude decreased [Unknown]
  - Anger [Unknown]
